FAERS Safety Report 6516776-3 (Version None)
Quarter: 2009Q4

REPORT INFORMATION
  Report Type: 
  Country: None (occurrence: None)
  Receive Date: 20091215
  Receipt Date: 20090316
  Transmission Date: 20100525
  Serious: Yes (Other)
  Sender: FDA-Public Use
  Company Number: 09-000450

PATIENT
  Age: 62 Year
  Sex: Female
  Weight: 104.3 kg

DRUGS (12)
  1. FEMHRT [Suspect]
     Indication: MENOPAUSAL SYMPTOMS
     Dates: start: 20000510
  2. PREMPRO [Suspect]
     Indication: MENOPAUSAL SYMPTOMS
     Dates: start: 19970813, end: 19991021
  3. PREMARIN [Suspect]
     Indication: MENOPAUSAL SYMPTOMS
     Dates: start: 19950223, end: 20040101
  4. PROVERA [Suspect]
     Indication: MENOPAUSAL SYMPTOMS
     Dates: start: 19990101, end: 20040101
  5. TEMAZEPAM [Concomitant]
  6. CRESTOR [Concomitant]
  7. NORVASC /00972401/ (AMLODIPINE) [Concomitant]
  8. LIPITOR [Concomitant]
  9. LEVOTHYROXINE SODIUM [Concomitant]
  10. GLUCOVANCE /01182201/ (GLIBENCLAMIDE, METFORMIN HYDROCHLORIDE) [Concomitant]
  11. ASPIRIN [Concomitant]
  12. ORAL CONTRACEPTIVE NOS (ORAL CONTRACEPTIVE NOS) [Concomitant]

REACTIONS (1)
  - BREAST CANCER [None]
